FAERS Safety Report 23925890 (Version 1)
Quarter: 2024Q2

REPORT INFORMATION
  Report Type: Spontaneous
  Country: FR (occurrence: FR)
  Receive Date: 20240531
  Receipt Date: 20240531
  Transmission Date: 20240715
  Serious: Yes (Other)
  Sender: FDA-Public Use
  Company Number: None

PATIENT
  Age: 26 Year
  Sex: Male
  Weight: 75 kg

DRUGS (9)
  1. ELEXACAFTOR\IVACAFTOR\TEZACAFTOR [Suspect]
     Active Substance: ELEXACAFTOR\IVACAFTOR\TEZACAFTOR
     Indication: Cystic fibrosis
     Dosage: 2 TABLETS (75MG IVACAFTOR/50MG TEZACAFTOR/100MG ELEXACAFTOR) AM?.
     Route: 048
     Dates: start: 20210311, end: 20230216
  2. ELEXACAFTOR\IVACAFTOR\TEZACAFTOR [Suspect]
     Active Substance: ELEXACAFTOR\IVACAFTOR\TEZACAFTOR
     Dosage: 1/2 DOSE
     Route: 048
     Dates: start: 20230311
  3. KALYDECO [Suspect]
     Active Substance: IVACAFTOR
     Indication: Cystic fibrosis
     Dosage: 1 TABLET IN THE EVENING
     Route: 048
     Dates: start: 20210720, end: 20230216
  4. KALYDECO [Suspect]
     Active Substance: IVACAFTOR
     Dosage: 1/2 DOSE
     Route: 048
     Dates: start: 20230311
  5. KETOPROFEN [Suspect]
     Active Substance: KETOPROFEN
     Indication: Product used for unknown indication
     Dosage: UNK
     Route: 065
  6. ACETAMINOPHEN\ASCORBIC ACID\PHENIRAMINE MALEATE [Suspect]
     Active Substance: ACETAMINOPHEN\ASCORBIC ACID\PHENIRAMINE MALEATE
     Indication: Product used for unknown indication
     Route: 048
  7. URSODIOL [Concomitant]
     Active Substance: URSODIOL
  8. CREON [Concomitant]
     Active Substance: PANCRELIPASE AMYLASE\PANCRELIPASE LIPASE\PANCRELIPASE PROTEASE
     Dosage: GASTRORESISTANT GRANULES IN CAPSULE
  9. AZITHROMYCIN [Concomitant]
     Active Substance: AZITHROMYCIN

REACTIONS (1)
  - Hepatic cytolysis [Not Recovered/Not Resolved]

NARRATIVE: CASE EVENT DATE: 20230118
